FAERS Safety Report 4664177-5 (Version None)
Quarter: 2005Q2

REPORT INFORMATION
  Report Type: 
  Country: None (occurrence: None)
  Receive Date: 20050516
  Receipt Date: 20050516
  Transmission Date: 20051028
  Serious: No
  Sender: FDA-Public Use
  Company Number: None

PATIENT
  Sex: Male
  Weight: 83.4619 kg

DRUGS (1)
  1. LIPITOR [Suspect]
     Indication: BLOOD CHOLESTEROL INCREASED
     Dosage: 10-20MG  ONE DAILY ORAL
     Route: 048
     Dates: start: 19980101, end: 20050506

REACTIONS (5)
  - ARTHRALGIA [None]
  - MYALGIA [None]
  - NEURALGIA [None]
  - PALPITATIONS [None]
  - TREATMENT NONCOMPLIANCE [None]
